FAERS Safety Report 19912152 (Version 2)
Quarter: 2022Q1

REPORT INFORMATION
  Report Type: Report from Study
  Country: IN (occurrence: IN)
  Receive Date: 20211004
  Receipt Date: 20220110
  Transmission Date: 20220423
  Serious: Yes (Hospitalization, Disabling, Other)
  Sender: FDA-Public Use
  Company Number: IN-PFIZER INC-202101283327

PATIENT
  Age: 49 Year
  Sex: Female
  Weight: 66 kg

DRUGS (2)
  1. LORLATINIB [Suspect]
     Active Substance: LORLATINIB
     Indication: Lung cancer metastatic
     Dosage: 100 MG, 1X/DAY
     Route: 048
     Dates: start: 20191128, end: 20210906
  2. LEVETIRACETAM [Concomitant]
     Active Substance: LEVETIRACETAM
     Indication: Seizure
     Dosage: 500 MG, 2X/DAY
     Route: 048
     Dates: start: 20180814

REACTIONS (8)
  - Neurotoxicity [Not Recovered/Not Resolved]
  - Altered state of consciousness [Recovering/Resolving]
  - Coma [Recovering/Resolving]
  - Cognitive disorder [Unknown]
  - Memory impairment [Unknown]
  - Ataxia [Unknown]
  - Dysarthria [Unknown]
  - Nervous system disorder [Unknown]

NARRATIVE: CASE EVENT DATE: 20210702
